FAERS Safety Report 7841767 (Version 5)
Quarter: 2012Q4

REPORT INFORMATION
  Report Type: 
  Country: CA (occurrence: CA)
  Receive Date: 20110304
  Receipt Date: 20121024
  Transmission Date: 20130627
  Serious: Yes (Hospitalization, Other)
  Sender: FDA-Public Use
  Company Number: PHHY2011CA14591

PATIENT
  Age: 53 Year
  Sex: Male
  Weight: 113.38 kg

DRUGS (2)
  1. AFINITOR [Suspect]
     Indication: ECTOPIC ACTH SYNDROME
     Dosage: 10mg every day
     Route: 048
     Dates: start: 20110501
  2. SANDOSTATIN LAR [Suspect]
     Indication: ECTOPIC ACTH SYNDROME
     Dosage: 60 mg, every 2 weeks
     Route: 030
     Dates: start: 20101130

REACTIONS (20)
  - Psychotic disorder [Unknown]
  - Thinking abnormal [Unknown]
  - Abnormal dreams [Unknown]
  - Weight increased [Unknown]
  - Swelling [Recovering/Resolving]
  - Diabetes mellitus [Unknown]
  - Hormone level abnormal [Unknown]
  - Blood cortisol abnormal [Unknown]
  - Blood pressure increased [Recovered/Resolved]
  - Cushing^s syndrome [Unknown]
  - Neoplasm progression [Unknown]
  - Malignant neoplasm progression [Unknown]
  - Injection site haemorrhage [Unknown]
  - Muscle spasms [Unknown]
  - Musculoskeletal stiffness [Unknown]
  - Blood potassium decreased [Unknown]
  - Feeling abnormal [Unknown]
  - Blood cholesterol abnormal [Unknown]
  - Malaise [Unknown]
  - Fatigue [Unknown]
